FAERS Safety Report 4880316-5 (Version None)
Quarter: 2006Q1

REPORT INFORMATION
  Report Type: 
  Country: None (occurrence: None)
  Receive Date: 20060113
  Receipt Date: 20060106
  Transmission Date: 20060701
  Serious: Yes (Hospitalization)
  Sender: FDA-Public Use
  Company Number: GB-BRISTOL-MYERS SQUIBB COMPANY-13241864

PATIENT
  Age: 66 Year
  Sex: Male

DRUGS (3)
  1. CETUXIMAB [Suspect]
     Indication: NON-SMALL CELL LUNG CANCER
     Route: 041
     Dates: start: 20051129
  2. CISPLATIN [Suspect]
     Indication: NON-SMALL CELL LUNG CANCER
     Route: 042
     Dates: start: 20051130
  3. VINORELBINE [Suspect]
     Indication: NON-SMALL CELL LUNG CANCER
     Route: 042
     Dates: start: 20051130

REACTIONS (5)
  - HEMIPLEGIA [None]
  - LOWER RESPIRATORY TRACT INFECTION [None]
  - METASTASES TO CENTRAL NERVOUS SYSTEM [None]
  - NEUTROPENIA [None]
  - RENAL IMPAIRMENT [None]
